FAERS Safety Report 8899127 (Version 1)
Quarter: 2012Q4

REPORT INFORMATION
  Report Type: 
  Country: US (occurrence: US)
  Receive Date: 20121109
  Receipt Date: 20121109
  Transmission Date: 20130627
  Serious: Yes (Other)
  Sender: FDA-Public Use
  Company Number: CHPA2012US021342

PATIENT
  Age: 73 Year
  Sex: Male

DRUGS (6)
  1. VOLTAREN GEL [Suspect]
     Indication: SPINAL FUSION SURGERY
     Dosage: 1/3 of a full strip,daily
     Route: 061
     Dates: start: 2009
  2. CHOLESTEROL- AND TRIGLYCERIDE REDUCERS [Concomitant]
  3. FLOMAX ^BOEHRINGER INGELHEIM^ [Concomitant]
  4. HYPNOTICS AND SEDATIVES [Concomitant]
  5. MORPHINE [Concomitant]
  6. DRUG THERAPY NOS [Concomitant]

REACTIONS (3)
  - Compression fracture [Not Recovered/Not Resolved]
  - Off label use [Unknown]
  - Drug administered at inappropriate site [Unknown]
